FAERS Safety Report 9918967 (Version 2)
Quarter: 2014Q1

REPORT INFORMATION
  Report Type: Spontaneous
  Country: US (occurrence: US)
  Receive Date: 20140224
  Receipt Date: 20140224
  Transmission Date: 20141002
  Serious: No
  Sender: FDA-Public Use
  Company Number: US-BRISTOL-MYERS SQUIBB COMPANY-17364092

PATIENT
  Age: 65 Year
  Sex: Female
  Weight: 69.39 kg

DRUGS (2)
  1. METFORMIN HCL TABS [Suspect]
     Indication: TYPE 2 DIABETES MELLITUS
     Dosage: 4 TABLETS DAILY
  2. GLIMEPIRIDE [Suspect]
     Indication: TYPE 2 DIABETES MELLITUS

REACTIONS (2)
  - Drug ineffective [Recovering/Resolving]
  - Weight decreased [Recovering/Resolving]
